FAERS Safety Report 10017225 (Version 1)
Quarter: 2014Q1

REPORT INFORMATION
  Report Type: Spontaneous
  Country: DE (occurrence: DE)
  Receive Date: 20140318
  Receipt Date: 20140318
  Transmission Date: 20141002
  Serious: Yes (Hospitalization, Other)
  Sender: FDA-Public Use
  Company Number: DE-UCBSA-114642

PATIENT
  Age: 52 Year
  Sex: Female
  Weight: 65 kg

DRUGS (2)
  1. KEPPRA [Suspect]
     Dosage: 10 TABLETS OF 750 MG; TOTAL DOSE INTAKE: 7500 MG
     Route: 048
     Dates: start: 20140307
  2. OPIPRAMOL [Suspect]
     Dosage: 3 TABLETS
     Route: 048
     Dates: start: 20140307

REACTIONS (3)
  - Suicide attempt [Unknown]
  - Somnolence [Unknown]
  - Intentional overdose [Unknown]
